FAERS Safety Report 18104066 (Version 1)
Quarter: 2020Q3

REPORT INFORMATION
  Report Type: Spontaneous
  Country: JP (occurrence: JP)
  Receive Date: 20200803
  Receipt Date: 20200803
  Transmission Date: 20201103
  Serious: Yes (Other)
  Sender: FDA-Public Use
  Company Number: JP-PFIZER INC-2020288677

PATIENT

DRUGS (2)
  1. DIPYRIDAMOLE. [Suspect]
     Active Substance: DIPYRIDAMOLE
     Dosage: UNK
  2. SOLU?MEDROL [Suspect]
     Active Substance: METHYLPREDNISOLONE SODIUM SUCCINATE
     Dosage: UNK
     Route: 042

REACTIONS (1)
  - Myocardial ischaemia [Unknown]
